FAERS Safety Report 8334226 (Version 2)
Quarter: 2013Q2

REPORT INFORMATION
  Report Type: Spontaneous
  Country: US (occurrence: None)
  Receive Date: 20111130
  Receipt Date: 20120731
  Transmission Date: 20140414
  Serious: Yes (Other)
  Sender: FDA-Public Use
  Company Number: US201107004463

PATIENT
  Age: 53 Year
  Sex: Female

DRUGS (9)
  1. BYETTA [Suspect]
     Dates: start: 2008, end: 2009
  2. CYMBALTA (DULOXETINE  HYDROCHLORIDE) [Concomitant]
  3. METFORMIN HCL (METFORMIN HYDROCHLORIDE) [Concomitant]
  4. AMARYL (GLIMEPIRIDE) [Concomitant]
  5. LISINOPRIL (LISINOPRIL) [Concomitant]
  6. LIPITOR (ATORVASTATIN CALCIUM) [Concomitant]
  7. DARVOCET-N (DEXTROPROPOXYPHENE NAPSILATE, PARACETAMOL) [Concomitant]
  8. PREVPAC (AMOXICILLIN TRIHYDRATE, CLARITHROMYCIN, LANSOPRAZOLE) [Concomitant]
  9. ATARAX (ALPRAZOLAM) [Concomitant]

REACTIONS (3)
  - PANCREATITIS [None]
  - Cholelithiasis [None]
  - Biliary dyskinesia [None]
